FAERS Safety Report 5148078-4 (Version None)
Quarter: 2006Q4

REPORT INFORMATION
  Report Type: 
  Country: None (occurrence: None)
  Receive Date: 20061106
  Receipt Date: 20061025
  Transmission Date: 20070319
  Serious: Yes (Disabling)
  Sender: FDA-Public Use
  Company Number: 2006106966

PATIENT
  Age: 77 Year
  Sex: Female

DRUGS (1)
  1. AMLODIPINE [Suspect]
     Indication: ANGINA PECTORIS
     Dates: start: 20020101

REACTIONS (3)
  - INSOMNIA [None]
  - RESTLESS LEGS SYNDROME [None]
  - RESTLESSNESS [None]
